FAERS Safety Report 5634326-0 (Version None)
Quarter: 2008Q1

REPORT INFORMATION
  Report Type: 
  Country: None (occurrence: None)
  Receive Date: 20080222
  Receipt Date: 20080213
  Transmission Date: 20080703
  Serious: Yes (Other)
  Sender: FDA-Public Use
  Company Number: US-BAYER-200813809NA

PATIENT
  Sex: Female

DRUGS (1)
  1. YAZ [Suspect]
     Dates: start: 20071001

REACTIONS (2)
  - BLOOD COPPER INCREASED [None]
  - MULTIPLE SCLEROSIS [None]
